FAERS Safety Report 8021755-3 (Version None)
Quarter: 2012Q1

REPORT INFORMATION
  Report Type: 
  Country: None (occurrence: None)
  Receive Date: 20120104
  Receipt Date: 20111228
  Transmission Date: 20120608
  Serious: Yes (Other)
  Sender: FDA-Public Use
  Company Number: PHHY2011CA103237

PATIENT
  Sex: Female

DRUGS (2)
  1. SANDOSTATIN [Suspect]
     Indication: NEUROENDOCRINE CARCINOMA
     Dosage: 30 MG, QW4
     Route: 030
     Dates: start: 20111125
  2. SANDOSTATIN LAR [Suspect]
     Indication: NEUROENDOCRINE CARCINOMA
     Dosage: 30 MG, EVERY 4 WEEKS
     Route: 030
     Dates: start: 20111125

REACTIONS (9)
  - DIARRHOEA [None]
  - PROCTALGIA [None]
  - JOINT SWELLING [None]
  - OEDEMA PERIPHERAL [None]
  - FAECAL INCONTINENCE [None]
  - ABNORMAL FAECES [None]
  - FATIGUE [None]
  - NAUSEA [None]
  - FLATULENCE [None]
